FAERS Safety Report 20999368 (Version 1)
Quarter: 2022Q2

REPORT INFORMATION
  Report Type: Spontaneous
  Country: US (occurrence: US)
  Receive Date: 20220623
  Receipt Date: 20220623
  Transmission Date: 20220721
  Serious: Yes (Other)
  Sender: FDA-Public Use
  Company Number: US-BRISTOL-MYERS SQUIBB COMPANY-2022-048122

PATIENT
  Age: 58 Year
  Sex: Female

DRUGS (1)
  1. POMALYST [Suspect]
     Active Substance: POMALIDOMIDE
     Indication: Product used for unknown indication
     Dosage: TAKE 1 CAPSULE (2 MG TOTAL) BY MOUTH DAILY FOR 3 WEEKS, THEN 1 WEEK OFF
     Route: 048
     Dates: start: 20220426

REACTIONS (1)
  - Pneumonia [Recovered/Resolved]
